FAERS Safety Report 16310847 (Version 2)
Quarter: 2020Q1

REPORT INFORMATION
  Report Type: Spontaneous
  Country: US (occurrence: US)
  Receive Date: 20190514
  Receipt Date: 20200218
  Transmission Date: 20200409
  Serious: Yes (Disabling, Other)
  Sender: FDA-Public Use
  Company Number: US-ASTRAZENECA-2019SE68031

PATIENT
  Age: 19151 Day
  Sex: Male

DRUGS (50)
  1. NEXIUM [Suspect]
     Active Substance: ESOMEPRAZOLE MAGNESIUM
     Indication: GASTROOESOPHAGEAL REFLUX DISEASE
     Dosage: GENERIC
     Route: 065
     Dates: start: 20150611
  2. NEXIUM 24HR [Suspect]
     Active Substance: ESOMEPRAZOLE MAGNESIUM
     Indication: GASTROOESOPHAGEAL REFLUX DISEASE
     Route: 048
  3. PANTOPRAZOLE [Suspect]
     Active Substance: PANTOPRAZOLE
     Indication: GASTROOESOPHAGEAL REFLUX DISEASE
     Route: 065
     Dates: start: 201402
  4. AMOX-CLAV [Concomitant]
     Active Substance: AMOXICILLIN\CLAVULANATE POTASSIUM
     Dates: start: 201303
  5. PROMETHAZINE [Concomitant]
     Active Substance: PROMETHAZINE HYDROCHLORIDE
     Dates: start: 20180607
  6. STATIN [Concomitant]
     Active Substance: UNSPECIFIED INGREDIENT
  7. PALONOSETRON. [Concomitant]
     Active Substance: PALONOSETRON HYDROCHLORIDE
  8. NEXIUM [Suspect]
     Active Substance: ESOMEPRAZOLE MAGNESIUM
     Indication: GASTROOESOPHAGEAL REFLUX DISEASE
     Dosage: GENERIC
     Route: 065
     Dates: start: 201506
  9. PREVACID 24 HR [Suspect]
     Active Substance: LANSOPRAZOLE
     Indication: GASTROOESOPHAGEAL REFLUX DISEASE
     Route: 065
  10. GLIMEPIRIDE. [Concomitant]
     Active Substance: GLIMEPIRIDE
     Indication: DIABETES MELLITUS
     Dates: start: 2008, end: 2019
  11. TRANSDERM [Concomitant]
  12. FLUOROURACIL. [Concomitant]
     Active Substance: FLUOROURACIL
  13. OXALIPLATIN. [Concomitant]
     Active Substance: OXALIPLATIN
  14. METRONIDAZOLE. [Concomitant]
     Active Substance: METRONIDAZOLE
  15. LORAZEPAM. [Concomitant]
     Active Substance: LORAZEPAM
  16. NEXIUM [Suspect]
     Active Substance: ESOMEPRAZOLE MAGNESIUM
     Indication: GASTROOESOPHAGEAL REFLUX DISEASE
     Route: 048
     Dates: start: 201204
  17. NEXIUM [Suspect]
     Active Substance: ESOMEPRAZOLE MAGNESIUM
     Indication: GASTROOESOPHAGEAL REFLUX DISEASE
     Dosage: GENERIC
     Route: 065
     Dates: start: 2018, end: 2019
  18. HYDROCODONE [Concomitant]
     Active Substance: HYDROCODONE
     Dates: start: 201406
  19. METOCLOPRAMIDE. [Concomitant]
     Active Substance: METOCLOPRAMIDE
     Dates: start: 20180607
  20. BISOPROLOL FUMARATE. [Concomitant]
     Active Substance: BISOPROLOL FUMARATE
  21. PROPOFOL. [Concomitant]
     Active Substance: PROPOFOL
  22. FOSAPREPITANT [Concomitant]
     Active Substance: FOSAPREPITANT
  23. NEXIUM [Suspect]
     Active Substance: ESOMEPRAZOLE MAGNESIUM
     Indication: GASTROOESOPHAGEAL REFLUX DISEASE
     Route: 048
     Dates: start: 20040312
  24. NEXIUM [Suspect]
     Active Substance: ESOMEPRAZOLE MAGNESIUM
     Indication: GASTROOESOPHAGEAL REFLUX DISEASE
     Route: 048
     Dates: start: 2012, end: 2014
  25. NEXIUM [Suspect]
     Active Substance: ESOMEPRAZOLE MAGNESIUM
     Indication: GASTROOESOPHAGEAL REFLUX DISEASE
     Dosage: GENERIC
     Route: 065
  26. DEXILANT [Suspect]
     Active Substance: DEXLANSOPRAZOLE
     Indication: GASTROOESOPHAGEAL REFLUX DISEASE
     Route: 065
     Dates: start: 201804, end: 201808
  27. DEXILANT [Suspect]
     Active Substance: DEXLANSOPRAZOLE
     Indication: GASTROOESOPHAGEAL REFLUX DISEASE
     Route: 065
     Dates: start: 20180413
  28. MECLIZINE [Concomitant]
     Active Substance: MECLIZINE HYDROCHLORIDE
     Dates: start: 201303
  29. CARVEDILOL. [Concomitant]
     Active Substance: CARVEDILOL
  30. GLUCOSE [Concomitant]
     Active Substance: DEXTROSE
  31. VISTARIL [Concomitant]
     Active Substance: HYDROXYZINE PAMOATE
  32. LEUCOVORIN. [Concomitant]
     Active Substance: LEUCOVORIN
  33. HEPARIN [Concomitant]
     Active Substance: HEPARIN SODIUM
  34. VITAMIN B12 [Concomitant]
     Active Substance: CYANOCOBALAMIN
  35. PANTOPRAZOLE [Suspect]
     Active Substance: PANTOPRAZOLE
     Indication: GASTROOESOPHAGEAL REFLUX DISEASE
     Route: 065
     Dates: start: 201402, end: 201403
  36. JANUVIA [Concomitant]
     Active Substance: SITAGLIPTIN PHOSPHATE
     Dates: start: 201205
  37. SIMVASTATIN. [Concomitant]
     Active Substance: SIMVASTATIN
     Dates: start: 201301
  38. HYOSCYAMINE. [Concomitant]
     Active Substance: HYOSCYAMINE
     Dates: start: 201306
  39. TRADJENTA [Concomitant]
     Active Substance: LINAGLIPTIN
     Dates: start: 201311
  40. ONDANSETRON [Concomitant]
     Active Substance: ONDANSETRON
  41. BISOPROLOL [Concomitant]
     Active Substance: BISOPROLOL
  42. IBUPROFEN. [Concomitant]
     Active Substance: IBUPROFEN
  43. LEVOFLOXACIN. [Concomitant]
     Active Substance: LEVOFLOXACIN
  44. LEXAPRO [Concomitant]
     Active Substance: ESCITALOPRAM OXALATE
  45. CIPROFLOXACIN. [Concomitant]
     Active Substance: CIPROFLOXACIN
     Dates: start: 201408
  46. ZANTAC [Concomitant]
     Active Substance: RANITIDINE HYDROCHLORIDE
     Dosage: ZANTAC 150
     Dates: start: 1991
  47. CARAFATE [Concomitant]
     Active Substance: SUCRALFATE
  48. LISINOPRIL. [Concomitant]
     Active Substance: LISINOPRIL
     Dates: start: 20171231
  49. LIDOCAINE. [Concomitant]
     Active Substance: LIDOCAINE
  50. XANAX [Concomitant]
     Active Substance: ALPRAZOLAM

REACTIONS (2)
  - Gastric cancer stage III [Not Recovered/Not Resolved]
  - Adenocarcinoma gastric [Unknown]

NARRATIVE: CASE EVENT DATE: 20180323
